FAERS Safety Report 4624437-0 (Version None)
Quarter: 2005Q1

REPORT INFORMATION
  Report Type: 
  Country: None (occurrence: None)
  Receive Date: 20050330
  Receipt Date: 20050330
  Transmission Date: 20050727
  Serious: Yes (Hospitalization)
  Sender: FDA-Public Use
  Company Number: None

PATIENT
  Age: 24 Month
  Sex: Female

DRUGS (1)
  1. CORISTINA D TABLETS [Suspect]
     Indication: ACCIDENTAL EXPOSURE
     Dosage: ORAL
     Route: 048
     Dates: start: 20050322, end: 20050322

REACTIONS (2)
  - ACCIDENTAL EXPOSURE [None]
  - DIARRHOEA [None]
